FAERS Safety Report 6626861-3 (Version None)
Quarter: 2010Q1

REPORT INFORMATION
  Report Type: 
  Country: None (occurrence: None)
  Receive Date: 20100311
  Receipt Date: 20100301
  Transmission Date: 20100710
  Serious: Yes (Hospitalization)
  Sender: FDA-Public Use
  Company Number: DE-RANBAXY-2010RR-32183

PATIENT
  Age: 67 Year
  Sex: Male
  Weight: 78 kg

DRUGS (7)
  1. PARACETAMOL [Suspect]
     Indication: BRONCHITIS
     Dosage: 1000 MG, QD
     Route: 048
     Dates: start: 20091227, end: 20100102
  2. CLARITHROMYCIN [Suspect]
     Indication: BRONCHITIS
     Dosage: 500 MG, QD
     Route: 048
     Dates: start: 20091227, end: 20100102
  3. VIANI [Concomitant]
     Indication: CHRONIC OBSTRUCTIVE PULMONARY DISEASE
     Dosage: 1 DF, QD
     Route: 055
  4. AARANE [Concomitant]
     Indication: CHRONIC OBSTRUCTIVE PULMONARY DISEASE
     Dosage: 1 DF, QD
     Route: 055
  5. KARVEZIDE [Concomitant]
     Indication: HYPERTENSION
     Dosage: 50 MG, QD
     Route: 048
     Dates: start: 20040101
  6. NIFURANTIN [Concomitant]
     Indication: CYSTITIS NONINFECTIVE
     Dosage: 100 MG, QD
     Route: 048
     Dates: start: 20040101, end: 20100105
  7. TAMSULOSIN HCL [Concomitant]
     Indication: BENIGN PROSTATIC HYPERPLASIA
     Dosage: 0.4 MG, QD
     Route: 048
     Dates: start: 20090101

REACTIONS (1)
  - HEPATIC FAILURE [None]
